FAERS Safety Report 5656761-7 (Version None)
Quarter: 2008Q1

REPORT INFORMATION
  Report Type: 
  Country: None (occurrence: None)
  Receive Date: 20080310
  Receipt Date: 20080310
  Transmission Date: 20080703
  Serious: Yes (Hospitalization, Other)
  Sender: FDA-Public Use
  Company Number: None

PATIENT
  Age: 45 Year
  Sex: Female
  Weight: 68.0396 kg

DRUGS (1)
  1. HEPARIN [Suspect]
     Indication: THROMBOSIS PROPHYLAXIS
     Dates: start: 20060112, end: 20060122

REACTIONS (10)
  - ABDOMINAL WALL ABSCESS [None]
  - ANTIBODY TEST POSITIVE [None]
  - BODY TEMPERATURE INCREASED [None]
  - BRACHIAL PLEXUS INJURY [None]
  - DEEP VEIN THROMBOSIS [None]
  - HEPARIN-INDUCED THROMBOCYTOPENIA [None]
  - LUNG DISORDER [None]
  - NUTRITIONAL CONDITION ABNORMAL [None]
  - PULMONARY EMBOLISM [None]
  - RETROPERITONEAL ABSCESS [None]
